FAERS Safety Report 6322010-X (Version None)
Quarter: 2009Q3

REPORT INFORMATION
  Report Type: 
  Country: None (occurrence: None)
  Receive Date: 20090821
  Receipt Date: 20090821
  Transmission Date: 20100115
  Serious: Yes (Hospitalization)
  Sender: FDA-Public Use
  Company Number: None

PATIENT
  Age: 60 Year
  Weight: 85.7298 kg

DRUGS (2)
  1. CAPECITABINE [Suspect]
     Indication: BREAST CANCER
     Dosage: 2000MG/M2 DL-14 Q3WK
     Dates: start: 20080131, end: 20080222
  2. DOCETAXEL [Suspect]
     Indication: BREAST CANCER
     Dosage: 75 MG/ M2 DL-14 Q3WK
     Dates: start: 20080131, end: 20080222

REACTIONS (2)
  - DEHYDRATION [None]
  - DIARRHOEA [None]
